FAERS Safety Report 7223460-X (Version None)
Quarter: 2011Q1

REPORT INFORMATION
  Report Type: 
  Country: None (occurrence: None)
  Receive Date: 20110112
  Receipt Date: 20100706
  Transmission Date: 20110831
  Serious: No
  Sender: FDA-Public Use
  Company Number: US-ALLERGAN-1008735US

PATIENT
  Age: 81 Year
  Sex: Female

DRUGS (3)
  1. OPTIVE [Concomitant]
  2. REFRESH CLASSIC [Concomitant]
  3. RESTASIS [Suspect]
     Indication: DRY EYE
     Dosage: 1 GTT, BID
     Route: 047

REACTIONS (3)
  - LACRIMATION INCREASED [None]
  - DRUG ADMINISTRATION ERROR [None]
  - EYE IRRITATION [None]
